FAERS Safety Report 13698568 (Version 2)
Quarter: 2017Q3

REPORT INFORMATION
  Report Type: Report from Study
  Country: JP (occurrence: JP)
  Receive Date: 20170628
  Receipt Date: 20170814
  Transmission Date: 20171127
  Serious: Yes (Death, Hospitalization)
  Sender: FDA-Public Use
  Company Number: JP-ASTRAZENECA-2017SE66592

PATIENT
  Age: 66 Year
  Sex: Female
  Weight: 44 kg

DRUGS (12)
  1. HIRUDOID [Concomitant]
     Active Substance: GLYCOSAMINOGLYCANS
     Indication: DRY SKIN PROPHYLAXIS
     Dosage: OPTIMAL DOSE AS REQUIRED
     Route: 003
     Dates: start: 20161107, end: 20170123
  2. OXINORM [Concomitant]
     Active Substance: OXYCODONE HYDROCHLORIDE
     Indication: CANCER PAIN
     Dosage: 2.5MG AS REQUIRED
     Route: 048
     Dates: end: 20170115
  3. BROCIN CODEINE [Concomitant]
     Active Substance: CODEINE PHOSPHATE\PRUNUS SEROTINA BARK
     Indication: COUGH
     Dosage: 60.0MG AS REQUIRED
     Route: 048
     Dates: start: 20161212, end: 20170109
  4. LANSOPRAZOLE. [Concomitant]
     Active Substance: LANSOPRAZOLE
     Indication: GASTRITIS PROPHYLAXIS
     Route: 048
     Dates: end: 20170116
  5. BAKTAR [Concomitant]
     Active Substance: SULFAMETHOXAZOLE\TRIMETHOPRIM
     Indication: INFECTION PROPHYLAXIS
     Route: 048
     Dates: end: 20170116
  6. ZYPREXA [Concomitant]
     Active Substance: OLANZAPINE
     Indication: INSOMNIA
     Route: 048
     Dates: end: 20170118
  7. DECADRON [Concomitant]
     Active Substance: DEXAMETHASONE
     Indication: BRAIN OEDEMA
     Route: 048
     Dates: end: 20170116
  8. TAGRISSO [Suspect]
     Active Substance: OSIMERTINIB
     Indication: NON-SMALL CELL LUNG CANCER
     Route: 048
     Dates: start: 20160426, end: 20170112
  9. OXYCODONE [Concomitant]
     Active Substance: OXYCODONE
     Indication: CANCER PAIN
     Route: 048
     Dates: end: 20170116
  10. UREPEARL [Concomitant]
     Active Substance: UREA
     Indication: ICHTHYOSIS ACQUIRED
     Dosage: OPTIMAL DOSE AS REQUIRED
     Route: 003
     Dates: end: 20170123
  11. KERATINAMIN [Concomitant]
     Active Substance: UREA
     Indication: ICHTHYOSIS ACQUIRED
     Dosage: OPTIMAL DOSE AS REQUIRED
     Route: 003
     Dates: start: 20160912, end: 20170123
  12. RINDERON V [Concomitant]
     Active Substance: BETAMETHASONE VALERATE
     Indication: DRY SKIN
     Dosage: MIXED WITH HIRUDOID SOFT OINTMENT, OPTIMAL DOSE AS REQUIRED
     Route: 003
     Dates: end: 20170123

REACTIONS (5)
  - Oedema [Not Recovered/Not Resolved]
  - Hyponatraemia [Recovered/Resolved]
  - Lung disorder [Not Recovered/Not Resolved]
  - Embolism [Recovering/Resolving]
  - Oedema peripheral [Recovering/Resolving]

NARRATIVE: CASE EVENT DATE: 20160523
